FAERS Safety Report 5370793-8 (Version None)
Quarter: 2007Q2

REPORT INFORMATION
  Report Type: 
  Country: None (occurrence: None)
  Receive Date: 20070626
  Receipt Date: 20070620
  Transmission Date: 20071010
  Serious: Yes (Hospitalization, Other)
  Sender: FDA-Public Use
  Company Number: B0475756A

PATIENT
  Age: 36 Year
  Sex: Female

DRUGS (7)
  1. PAROXETINE HCL [Suspect]
     Indication: DEPRESSION
     Route: 065
  2. BUSPIRONE [Suspect]
     Dosage: 60MG PER DAY
     Route: 065
  3. FE 2+ SUPPLEMENT [Suspect]
     Route: 048
  4. PINDOLOL [Suspect]
     Indication: HYPERTENSION
     Dosage: 10MG PER DAY
     Route: 065
  5. VENOFER [Suspect]
     Route: 065
  6. CEFADROXIL [Suspect]
     Dosage: 1G SEE DOSAGE TEXT
     Route: 065
  7. DESMOPRESSIN [Suspect]
     Route: 065

REACTIONS (11)
  - ANAEMIA [None]
  - DRUG EXPOSURE DURING PREGNANCY [None]
  - EPISTAXIS [None]
  - HAEMORRHAGIC DIATHESIS [None]
  - HYPERTENSION [None]
  - NAUSEA [None]
  - NITRITE URINE PRESENT [None]
  - PRE-ECLAMPSIA [None]
  - PROTEINURIA [None]
  - THROMBOCYTOPENIA [None]
  - VOMITING [None]
